FAERS Safety Report 5248740-9 (Version None)
Quarter: 2007Q1

REPORT INFORMATION
  Report Type: 
  Country: None (occurrence: None)
  Receive Date: 20070223
  Receipt Date: 20070210
  Transmission Date: 20070707
  Serious: Yes (Other)
  Sender: FDA-Public Use
  Company Number: 152875ISR

PATIENT
  Sex: Male

DRUGS (4)
  1. IBUPROFEN [Suspect]
  2. ETHANOL [Suspect]
  3. ACETYLSALICYLIC ACID SRT [Suspect]
  4. PAROXETINE HCL [Suspect]

REACTIONS (6)
  - ALCOHOL USE [None]
  - COMPLETED SUICIDE [None]
  - DRUG WITHDRAWAL SYNDROME [None]
  - JOB DISSATISFACTION [None]
  - MARITAL PROBLEM [None]
  - MULTIPLE DRUG OVERDOSE [None]
